FAERS Safety Report 7933535-5 (Version None)
Quarter: 2011Q4

REPORT INFORMATION
  Report Type: 
  Country: None (occurrence: None)
  Receive Date: 20111122
  Receipt Date: 20111109
  Transmission Date: 20120403
  Serious: Yes (Other)
  Sender: FDA-Public Use
  Company Number: US-AMGEN-USASP2011056511

PATIENT
  Age: 58 Year
  Sex: Female
  Weight: 61.678 kg

DRUGS (12)
  1. REMERON [Concomitant]
     Dosage: 15 MG, UNK
  2. PROVIGIL [Concomitant]
     Dosage: 100 MG, UNK
  3. SINGULAIR [Concomitant]
     Dosage: 10 MG, UNK
  4. BENTYL [Concomitant]
     Dosage: 10 MG, UNK
  5. CLONAZEPAM [Concomitant]
     Dosage: 0.5 MG, UNK
  6. TREXIMET [Concomitant]
     Dosage: UNK
  7. LISINOPRIL [Concomitant]
     Dosage: 2.5 MG, UNK
  8. SULFASALAZINE [Concomitant]
     Dosage: UNK
  9. ENBREL [Suspect]
     Indication: RHEUMATOID ARTHRITIS
     Dosage: 50 MG, QWK
     Route: 058
     Dates: start: 20110504
  10. CYMBALTA [Concomitant]
     Dosage: 20 MG, UNK
  11. RISPERDAL [Concomitant]
     Dosage: 0.5 MG, UNK
  12. CARDIZEM [Concomitant]
     Dosage: 30 MG, UNK

REACTIONS (12)
  - FIBROMYALGIA [None]
  - PAIN IN EXTREMITY [None]
  - BREAST PAIN [None]
  - BREAST INFECTION [None]
  - OPEN WOUND [None]
  - PYREXIA [None]
  - INFECTION [None]
  - LOCALISED INFECTION [None]
  - EAR PAIN [None]
  - CHILLS [None]
  - IMPAIRED HEALING [None]
  - MUSCULOSKELETAL PAIN [None]
